FAERS Safety Report 23501525 (Version 3)
Quarter: 2024Q1

REPORT INFORMATION
  Report Type: Spontaneous
  Country: US (occurrence: US)
  Receive Date: 20240208
  Receipt Date: 20240325
  Transmission Date: 20240410
  Serious: No
  Sender: FDA-Public Use
  Company Number: US-SANOFI-01927402

PATIENT
  Age: 69 Year
  Sex: Female

DRUGS (1)
  1. LANTUS SOLOSTAR [Suspect]
     Active Substance: INSULIN GLARGINE
     Indication: Diabetes mellitus
     Dosage: 90 IU, BID

REACTIONS (5)
  - Hot flush [Unknown]
  - Erythema [Unknown]
  - Product odour abnormal [Unknown]
  - Inappropriate schedule of product administration [Unknown]
  - Device issue [Unknown]
